FAERS Safety Report 9199448 (Version 2)
Quarter: 2013Q2

REPORT INFORMATION
  Report Type: Spontaneous
  Country: US (occurrence: US)
  Receive Date: 20130329
  Receipt Date: 20130408
  Transmission Date: 20140414
  Serious: No
  Sender: FDA-Public Use
  Company Number: US-009507513-1303USA012989

PATIENT
  Age: 85 Year
  Sex: Female

DRUGS (1)
  1. NASONEX [Suspect]
     Indication: SINUSITIS
     Dosage: 2 SPRAYS IN EACH NOSTRIL, QD
     Route: 045
     Dates: start: 20130314, end: 20130322

REACTIONS (3)
  - Laryngitis [Recovering/Resolving]
  - Cough [Recovering/Resolving]
  - Dry throat [Recovering/Resolving]
